FAERS Safety Report 25555264 (Version 1)
Quarter: 2025Q3

REPORT INFORMATION
  Report Type: Spontaneous
  Country: US (occurrence: US)
  Receive Date: 20250715
  Receipt Date: 20250715
  Transmission Date: 20251020
  Serious: Yes (Other)
  Sender: ALEXION PHARMACEUTICALS
  Company Number: US-AstraZeneca-CH-00897561A

PATIENT
  Sex: Female

DRUGS (2)
  1. AIRSUPRA [Suspect]
     Active Substance: ALBUTEROL SULFATE\BUDESONIDE
     Route: 065
  2. BUDESONIDE\FORMOTEROL [Suspect]
     Active Substance: BUDESONIDE\FORMOTEROL
     Route: 065

REACTIONS (7)
  - Suicidal ideation [Unknown]
  - Gait disturbance [Unknown]
  - Dyspnoea [Unknown]
  - Headache [Unknown]
  - Dizziness [Unknown]
  - Insomnia [Unknown]
  - Arthralgia [Unknown]
